FAERS Safety Report 18732196 (Version 1)
Quarter: 2021Q1

REPORT INFORMATION
  Report Type: Spontaneous
  Country: LK (occurrence: LK)
  Receive Date: 20210112
  Receipt Date: 20210112
  Transmission Date: 20210419
  Serious: Yes (Hospitalization)
  Sender: FDA-Public Use
  Company Number: LK-CUMBERLAND-2021-US-000003

PATIENT
  Age: 65 Year
  Sex: Female

DRUGS (1)
  1. REDITREX [Suspect]
     Active Substance: METHOTREXATE

REACTIONS (3)
  - Pulmonary mass [Not Recovered/Not Resolved]
  - Pneumothorax [Recovered/Resolved]
  - Bronchopulmonary aspergillosis [Recovered/Resolved]
